APPROVED DRUG PRODUCT: METRONIDAZOLE
Active Ingredient: METRONIDAZOLE
Strength: 500MG
Dosage Form/Route: TABLET;ORAL
Application: A070033 | Product #001 | TE Code: AB
Applicant: PLIVA INC
Approved: Dec 6, 1984 | RLD: No | RS: No | Type: RX